FAERS Safety Report 18989171 (Version 1)
Quarter: 2021Q1

REPORT INFORMATION
  Report Type: Spontaneous
  Country: CA (occurrence: CA)
  Receive Date: 20210309
  Receipt Date: 20210309
  Transmission Date: 20210420
  Serious: Yes (Hospitalization)
  Sender: FDA-Public Use
  Company Number: CA-BAUSCH-BL-2021-007611

PATIENT
  Age: 71 Year
  Sex: Male

DRUGS (11)
  1. CILAZAPRIL [Interacting]
     Active Substance: CILAZAPRIL ANHYDROUS
     Indication: PRODUCT USED FOR UNKNOWN INDICATION
     Route: 065
  2. VERAPAMIL HCL [Interacting]
     Active Substance: VERAPAMIL HYDROCHLORIDE
     Indication: PRODUCT USED FOR UNKNOWN INDICATION
     Route: 048
  3. ATENOLOL. [Interacting]
     Active Substance: ATENOLOL
     Route: 065
  4. DILTIAZEM HYDROCHLORIDE. [Interacting]
     Active Substance: DILTIAZEM HYDROCHLORIDE
     Route: 065
  5. DILTIAZEM HYDROCHLORIDE. [Interacting]
     Active Substance: DILTIAZEM HYDROCHLORIDE
     Indication: PRODUCT USED FOR UNKNOWN INDICATION
     Route: 065
  6. AMIODARONE [Concomitant]
     Active Substance: AMIODARONE
     Indication: PRODUCT USED FOR UNKNOWN INDICATION
     Route: 065
  7. DILTIAZEM HYDROCHLORIDE. [Suspect]
     Active Substance: DILTIAZEM HYDROCHLORIDE
     Indication: PRODUCT USED FOR UNKNOWN INDICATION
     Route: 065
  8. ATENOLOL. [Interacting]
     Active Substance: ATENOLOL
     Indication: PRODUCT USED FOR UNKNOWN INDICATION
     Route: 048
  9. CILAZAPRIL [Interacting]
     Active Substance: CILAZAPRIL ANHYDROUS
     Route: 065
  10. METOPROLOL SUCCINATE. [Concomitant]
     Active Substance: METOPROLOL SUCCINATE
     Indication: PRODUCT USED FOR UNKNOWN INDICATION
     Route: 065
  11. SOTALOL. [Concomitant]
     Active Substance: SOTALOL
     Indication: PRODUCT USED FOR UNKNOWN INDICATION
     Route: 065

REACTIONS (16)
  - Ventricular hypokinesia [Unknown]
  - Antiacetylcholine receptor antibody positive [Unknown]
  - Pacemaker generated rhythm [Unknown]
  - Fatigue [Unknown]
  - Blood potassium increased [Unknown]
  - Asthenia [Unknown]
  - Heart rate abnormal [Unknown]
  - Hypotension [Unknown]
  - Toxicity to various agents [Unknown]
  - Ejection fraction decreased [Unknown]
  - Heart rate increased [Unknown]
  - Atrial fibrillation [Unknown]
  - Palpitations [Unknown]
  - Cardiogenic shock [Unknown]
  - Dyspnoea [Unknown]
  - Drug interaction [Unknown]
